FAERS Safety Report 9586324 (Version 1)
Quarter: 2013Q4

REPORT INFORMATION
  Report Type: Spontaneous
  Country: US (occurrence: US)
  Receive Date: 20131003
  Receipt Date: 20131003
  Transmission Date: 20140711
  Serious: Yes (Other)
  Sender: FDA-Public Use
  Company Number: PHEH2013US020381

PATIENT
  Sex: Female

DRUGS (5)
  1. VALSARTAN + HCT [Suspect]
  2. KLONOPIN [Concomitant]
     Indication: INSOMNIA
     Dosage: 1 DF, AT NIGHT
  3. ALBUTEROL [Concomitant]
     Indication: ASTHMA
  4. LIPITOR [Concomitant]
  5. CRESTOR [Concomitant]

REACTIONS (6)
  - Renal pain [Unknown]
  - Renal failure [Unknown]
  - Haemorrhage urinary tract [Unknown]
  - Oedema [Unknown]
  - Blood cholesterol increased [Unknown]
  - Local swelling [Unknown]
